FAERS Safety Report 4376944-6 (Version None)
Quarter: 2004Q2

REPORT INFORMATION
  Report Type: 
  Country: None (occurrence: None)
  Receive Date: 20040614
  Receipt Date: 20040512
  Transmission Date: 20050107
  Serious: Yes (Life-Threatening, Hospitalization)
  Sender: FDA-Public Use
  Company Number: US-BRISTOL-MYERS SQUIBB COMPANY-12585691

PATIENT
  Age: 75 Year
  Sex: Male
  Weight: 121 kg

DRUGS (6)
  1. ERBITUX [Suspect]
     Indication: COLON CANCER
     Route: 042
     Dates: start: 20040504, end: 20040504
  2. BENADRYL [Concomitant]
     Indication: PREMEDICATION
     Route: 042
     Dates: start: 20040504, end: 20040504
  3. ZANTAC [Concomitant]
     Indication: PREMEDICATION
     Route: 042
     Dates: start: 20040504, end: 20040504
  4. SOLU-CORTEF [Concomitant]
     Indication: PREMEDICATION
     Route: 042
     Dates: start: 20040504, end: 20040504
  5. DILAUDID [Concomitant]
  6. FLOMAX [Concomitant]
     Route: 048

REACTIONS (4)
  - BLOOD PRESSURE DECREASED [None]
  - DIFFICULTY IN WALKING [None]
  - DYSPNOEA [None]
  - HYPOXIA [None]
